FAERS Safety Report 11240137 (Version 1)
Quarter: 2015Q3

REPORT INFORMATION
  Report Type: Spontaneous
  Country: US (occurrence: None)
  Receive Date: 20150701
  Receipt Date: 20150701
  Transmission Date: 20151125
  Serious: Yes (Hospitalization)
  Sender: FDA-Public Use
  Company Number: None

PATIENT
  Age: 66 Year
  Sex: Male
  Weight: 96.9 kg

DRUGS (3)
  1. NAPROXEN. [Suspect]
     Active Substance: NAPROXEN
     Indication: PAIN
     Route: 048
     Dates: start: 20140505, end: 20150606
  2. NAPROXEN. [Suspect]
     Active Substance: NAPROXEN
     Indication: INFLAMMATION
     Route: 048
     Dates: start: 20140505, end: 20150606
  3. ASPIRIN. [Suspect]
     Active Substance: ASPIRIN
     Indication: CARDIOVASCULAR EVENT PROPHYLAXIS
     Route: 048
     Dates: end: 20150606

REACTIONS (11)
  - Tachycardia [None]
  - Melaena [None]
  - Syncope [None]
  - Duodenitis [None]
  - Fatigue [None]
  - Nausea [None]
  - Haematemesis [None]
  - Alcohol use [None]
  - Upper gastrointestinal haemorrhage [None]
  - Anaemia [None]
  - Gastritis erosive [None]

NARRATIVE: CASE EVENT DATE: 20150606
